FAERS Safety Report 8038610-5 (Version None)
Quarter: 2012Q1

REPORT INFORMATION
  Report Type: 
  Country: None (occurrence: None)
  Receive Date: 20120111
  Receipt Date: 20111201
  Transmission Date: 20120608
  Serious: No
  Sender: FDA-Public Use
  Company Number: US-AMGEN-USASP2011039830

PATIENT
  Age: 59 Year
  Sex: Male

DRUGS (2)
  1. ENBREL [Suspect]
     Indication: PSORIATIC ARTHROPATHY
     Dosage: 50 MG, QWK
     Dates: start: 20070711
  2. ENBREL [Suspect]
     Indication: PSORIASIS

REACTIONS (8)
  - EXOSTOSIS [None]
  - MALAISE [None]
  - ROTATOR CUFF SYNDROME [None]
  - NASOPHARYNGITIS [None]
  - ARTHRALGIA [None]
  - INJECTION SITE PAIN [None]
  - BURSITIS [None]
  - TENDON DISORDER [None]
